FAERS Safety Report 24659099 (Version 1)
Quarter: 2024Q4

REPORT INFORMATION
  Report Type: Spontaneous
  Country: GB (occurrence: GB)
  Receive Date: 20241125
  Receipt Date: 20241125
  Transmission Date: 20250115
  Serious: Yes (Hospitalization)
  Sender: HIKMA
  Company Number: GB-HIKMA PHARMACEUTICALS-GB-H14001-24-10904

PATIENT
  Age: 62 Year
  Sex: Male

DRUGS (1)
  1. DOCETAXEL [Suspect]
     Active Substance: DOCETAXEL
     Indication: Product used for unknown indication
     Dosage: UNKNOWN
     Route: 065

REACTIONS (2)
  - Flushing [Recovered/Resolved]
  - Chest pain [Recovered/Resolved]
